FAERS Safety Report 14479260 (Version 3)
Quarter: 2018Q2

REPORT INFORMATION
  Report Type: Spontaneous
  Country: JP (occurrence: JP)
  Receive Date: 20180202
  Receipt Date: 20180521
  Transmission Date: 20180711
  Serious: Yes (Other)
  Sender: FDA-Public Use
  Company Number: JP-ASTRAZENECA-2018SE13116

PATIENT
  Age: 80 Year
  Sex: Female

DRUGS (3)
  1. ONGLYZA [Suspect]
     Active Substance: SAXAGLIPTIN HYDROCHLORIDE
     Indication: DIABETES MELLITUS
     Dosage: 2.5MG UNKNOWN
     Route: 048
     Dates: start: 20171218, end: 201801
  2. LANSOPRAZOLE. [Suspect]
     Active Substance: LANSOPRAZOLE
     Dosage: 15.0MG UNKNOWN
     Route: 048
     Dates: start: 20171218
  3. NEUROTROPIN [Concomitant]
     Active Substance: NEUROTROPIN
     Dates: start: 201712, end: 20171215

REACTIONS (3)
  - Liver function test abnormal [Not Recovered/Not Resolved]
  - Liver disorder [Not Recovered/Not Resolved]
  - Biliary tract disorder [Not Recovered/Not Resolved]

NARRATIVE: CASE EVENT DATE: 201712
